FAERS Safety Report 9301995 (Version 4)
Quarter: 2014Q2

REPORT INFORMATION
  Report Type: Spontaneous
  Country: US (occurrence: US)
  Receive Date: 20130521
  Receipt Date: 20140605
  Transmission Date: 20141212
  Serious: Yes (Hospitalization, Disabling, Other)
  Sender: FDA-Public Use
  Company Number: US-009507513-1305USA012232

PATIENT
  Sex: Male
  Weight: 112.47 kg

DRUGS (1)
  1. PROPECIA [Suspect]
     Indication: ALOPECIA
     Dosage: 1 MG, UNK
     Route: 048
     Dates: start: 200605, end: 20070826

REACTIONS (11)
  - Rotator cuff repair [Unknown]
  - Lower limb fracture [Unknown]
  - Hip arthroplasty [Unknown]
  - Sexual dysfunction [Not Recovered/Not Resolved]
  - Soft tissue injury [Unknown]
  - Hormone level abnormal [Unknown]
  - Brain injury [Unknown]
  - Organic erectile dysfunction [Unknown]
  - Dyspnoea [Unknown]
  - Erectile dysfunction [Not Recovered/Not Resolved]
  - Libido decreased [Unknown]
